FAERS Safety Report 13024279 (Version 2)
Quarter: 2017Q1

REPORT INFORMATION
  Report Type: Report from Study
  Country: DE (occurrence: DE)
  Receive Date: 20161213
  Receipt Date: 20170127
  Transmission Date: 20170428
  Serious: Yes (Life-Threatening, Hospitalization)
  Sender: FDA-Public Use
  Company Number: DE-TEVA-718896GER

PATIENT
  Sex: Female

DRUGS (19)
  1. COLECALCIFEROL [Concomitant]
     Active Substance: CHOLECALCIFEROL
     Indication: VITAMIN D DEFICIENCY
     Route: 048
     Dates: start: 20160815
  2. PEGFILGRASTIM [Suspect]
     Active Substance: PEGFILGRASTIM
     Indication: B-CELL LYMPHOMA
     Route: 058
     Dates: start: 20160826
  3. PREDNISOLONE. [Concomitant]
     Active Substance: PREDNISOLONE
     Indication: RASH
     Route: 003
     Dates: start: 20160506
  4. SULFAMETHOXAZOLE/TRIMETHOPRIM [Concomitant]
     Active Substance: SULFAMETHOXAZOLE\TRIMETHOPRIM
     Dosage: 1920 MILLIGRAM DAILY;
     Route: 048
     Dates: start: 20160831
  5. VINCRISTINE [Suspect]
     Active Substance: VINCRISTINE
     Indication: B-CELL LYMPHOMA
     Dosage: MOST RECENT DOSE ON 25-OCT-2016 PRIOR TO NEUTROPENIC SEPSIS (3.72 MG/M2 DAILY
     Dates: start: 20160823
  6. ACETYLSALICYLIC ACID [Concomitant]
     Active Substance: ASPIRIN
     Indication: CEREBROVASCULAR ACCIDENT
     Route: 048
  7. PANTOPRAZOL [Concomitant]
     Active Substance: PANTOPRAZOLE SODIUM
     Indication: GASTRITIS
     Route: 048
  8. ACICLOVIR [Concomitant]
     Active Substance: ACYCLOVIR
     Dosage: 2000 MILLIGRAM DAILY;
     Route: 048
     Dates: start: 20160830
  9. SULFAMETHOXAZOLE/TRIMETHOPRIM [Concomitant]
     Active Substance: SULFAMETHOXAZOLE\TRIMETHOPRIM
     Dosage: 1920 MILLIGRAM DAILY;
     Route: 048
     Dates: start: 20160823
  10. PREDNISONE. [Suspect]
     Active Substance: PREDNISONE
     Indication: B-CELL LYMPHOMA
     Dosage: MOST RECENT DOSE ON 25-OCT-2016 PRIOR TO NEUTROPENIC SEPSIS (100 MG, DAY 1-5)
     Route: 048
     Dates: start: 20160823
  11. PREDNISONE. [Suspect]
     Active Substance: PREDNISONE
     Dosage: MOST RECENT DOSE ON 25-OCT-2016 PRIOR TO NEUTROPENIC SEPSIS (500 MG, DAY 1-5)
     Route: 048
     Dates: start: 20160815
  12. CYCLOPHOSPHAMID [Suspect]
     Active Substance: CYCLOPHOSPHAMIDE
     Indication: B-CELL LYMPHOMA
     Dosage: MOST RECENT DOSE ON 25-OCT-2016 PRIOR TO NEUTROPENIC SEPSIS ( 1395 MG, 1 IN 14 DAYS)
     Route: 042
     Dates: start: 20160823
  13. DOXORUBICIN [Suspect]
     Active Substance: DOXORUBICIN
     Indication: B-CELL LYMPHOMA
     Dosage: MOST RECENT DOSE ON 25-OCT-2016 PRIOR TO NEUTROPENIC SEPSIS (93 MG 1 IN 14 DAYS)
     Route: 042
     Dates: start: 20160823
  14. DIMETINDENE MALEATE [Concomitant]
     Active Substance: DIMETHINDENE MALEATE
     Indication: VITAMIN D DEFICIENCY
     Dosage: 40 GTT DAILY;
     Route: 048
     Dates: start: 20160906
  15. INSULIN [Concomitant]
     Active Substance: INSULIN NOS
     Indication: DIABETES MELLITUS
     Route: 058
     Dates: start: 20160729
  16. RITUXIMAB [Suspect]
     Active Substance: RITUXIMAB
     Indication: B-CELL LYMPHOMA
     Dosage: MOST RECENT DOSE ON 24-OCT-2016 (CYCLE 5) PRIOR TO NEUTROPENIC SEPSIS ( 2812.5 MG, DAY 4 CYCLE 1/D)
     Route: 042
     Dates: start: 20160818
  17. ACICLOVIR [Concomitant]
     Active Substance: ACYCLOVIR
     Dosage: 2000 MILLIGRAM DAILY;
     Route: 048
     Dates: start: 20160818
  18. PEGFILGRASTIM [Suspect]
     Active Substance: PEGFILGRASTIM
     Route: 058
     Dates: start: 20161103
  19. TRIAMCINOLON [Concomitant]
     Indication: RASH
     Route: 003
     Dates: start: 20160906, end: 20161027

REACTIONS (5)
  - Gastritis erosive [Recovered/Resolved]
  - Anaemia [Recovered/Resolved]
  - Nausea [Recovered/Resolved]
  - Neutropenic sepsis [Recovered/Resolved]
  - Oesophageal candidiasis [Recovered/Resolved]

NARRATIVE: CASE EVENT DATE: 20160828
